FAERS Safety Report 5975434-4 (Version None)
Quarter: 2008Q4

REPORT INFORMATION
  Report Type: 
  Country: None (occurrence: None)
  Receive Date: 20081202
  Receipt Date: 20071226
  Transmission Date: 20090506
  Serious: Yes (Hospitalization)
  Sender: FDA-Public Use
  Company Number: US-AMGEN-QUU258168

PATIENT
  Sex: Female

DRUGS (3)
  1. ENBREL [Suspect]
     Indication: PSORIATIC ARTHROPATHY
  2. CYMBALTA [Concomitant]
  3. CRESTOR [Concomitant]

REACTIONS (2)
  - BREAST CANCER [None]
  - PSORIATIC ARTHROPATHY [None]
